FAERS Safety Report 6768920-0 (Version None)
Quarter: 2010Q2

REPORT INFORMATION
  Report Type: 
  Country: None (occurrence: None)
  Receive Date: 20100615
  Receipt Date: 20100304
  Transmission Date: 20101027
  Serious: Yes (Hospitalization)
  Sender: FDA-Public Use
  Company Number: US-ASTRAZENECA-2007UW02058

PATIENT
  Age: 546 Month
  Sex: Male
  Weight: 111.1 kg

DRUGS (31)
  1. SEROQUEL [Suspect]
     Indication: DEPRESSION
     Route: 048
     Dates: start: 20001101, end: 20060201
  2. SEROQUEL [Suspect]
     Indication: BIPOLAR DISORDER
     Route: 048
     Dates: start: 20001101, end: 20060201
  3. SEROQUEL [Suspect]
     Indication: INSOMNIA
     Route: 048
     Dates: start: 20001101, end: 20060201
  4. SEROQUEL [Suspect]
     Indication: AGITATION
     Route: 048
     Dates: start: 20001101, end: 20060201
  5. SEROQUEL [Suspect]
     Indication: ANXIETY
     Route: 048
     Dates: start: 20001101, end: 20060201
  6. SEROQUEL [Suspect]
     Route: 048
     Dates: start: 20011005
  7. SEROQUEL [Suspect]
     Route: 048
     Dates: start: 20011005
  8. SEROQUEL [Suspect]
     Route: 048
     Dates: start: 20011005
  9. SEROQUEL [Suspect]
     Route: 048
     Dates: start: 20011005
  10. SEROQUEL [Suspect]
     Route: 048
     Dates: start: 20011005
  11. SEROQUEL [Suspect]
     Dosage: 50 TO 200 MG
     Route: 048
     Dates: start: 20041113
  12. SEROQUEL [Suspect]
     Dosage: 50 TO 200 MG
     Route: 048
     Dates: start: 20041113
  13. SEROQUEL [Suspect]
     Dosage: 50 TO 200 MG
     Route: 048
     Dates: start: 20041113
  14. SEROQUEL [Suspect]
     Dosage: 50 TO 200 MG
     Route: 048
     Dates: start: 20041113
  15. SEROQUEL [Suspect]
     Dosage: 50 TO 200 MG
     Route: 048
     Dates: start: 20041113
  16. DEPAKOTE [Concomitant]
  17. ABILIFY [Concomitant]
     Dates: start: 20050101, end: 20060101
  18. HALDOL [Concomitant]
     Dates: start: 20060101
  19. RISPERDAL [Concomitant]
     Dates: start: 19990101, end: 20020101
  20. WELLBUTRIN [Concomitant]
     Indication: DEPRESSION
     Dates: start: 20040101
  21. WELLBUTRIN [Concomitant]
     Indication: ANXIETY
     Dates: start: 20040101
  22. REMERON [Concomitant]
     Indication: DEPRESSION
     Dates: start: 20040101
  23. REMERON [Concomitant]
     Indication: ANXIETY
     Dates: start: 20040101
  24. TRAZODONE HYDROCHLORIDE [Concomitant]
     Indication: ANXIETY
     Dates: start: 20040101, end: 20041113
  25. TRAZODONE HYDROCHLORIDE [Concomitant]
     Indication: DEPRESSION
     Dates: start: 20040101, end: 20041113
  26. HCTZ [Concomitant]
     Dosage: 12.5 TO 25 MG
     Route: 048
     Dates: start: 20041110
  27. PROTONIX [Concomitant]
     Dates: start: 20041110
  28. NORVASC [Concomitant]
     Dates: start: 20041110
  29. VALSARTAN [Concomitant]
     Route: 048
     Dates: start: 20070714
  30. HALOPERIDOL [Concomitant]
     Route: 048
     Dates: start: 20070714
  31. DIVALPROEX SODIUM [Concomitant]
     Dosage: 500 MG 2 TABLETS AT BEDTIME
     Route: 048
     Dates: start: 20070714

REACTIONS (15)
  - ABDOMINAL DISCOMFORT [None]
  - ALCOHOL ABUSE [None]
  - ARTHRALGIA [None]
  - ASTHMA [None]
  - BACK PAIN [None]
  - COUGH [None]
  - EYE PRURITUS [None]
  - GASTROOESOPHAGEAL REFLUX DISEASE [None]
  - MAJOR DEPRESSION [None]
  - OVERDOSE [None]
  - PAIN [None]
  - TESTICULAR PAIN [None]
  - TYPE 2 DIABETES MELLITUS [None]
  - VERTIGO [None]
  - VERTIGO POSITIONAL [None]
